FAERS Safety Report 11556792 (Version 1)
Quarter: 2015Q3

REPORT INFORMATION
  Report Type: Spontaneous
  Country: FR (occurrence: FR)
  Receive Date: 20150925
  Receipt Date: 20150925
  Transmission Date: 20151125
  Serious: Yes (Hospitalization)
  Sender: FDA-Public Use
  Company Number: PHHY2015FR116386

PATIENT
  Age: 47 Year
  Sex: Female

DRUGS (9)
  1. TRANSIPEG [Concomitant]
     Active Substance: POLYETHYLENE GLYCOL 3350
     Indication: PRODUCT USED FOR UNKNOWN INDICATION
     Dosage: 2 DF, QD
     Route: 065
  2. TERCIAN [Suspect]
     Active Substance: CYAMEMAZINE
     Indication: PRODUCT USED FOR UNKNOWN INDICATION
     Dosage: 0.5 DF (HALF TABLET), QID
     Route: 048
     Dates: start: 20150703, end: 20150705
  3. VALIUM [Suspect]
     Active Substance: DIAZEPAM
     Dosage: 2.5 DF (HALF TABLET OF VALIUM 10 MG THREE TIMES DAILY PLUS ONE TABLET IN THE EVENING), UNK
     Route: 048
     Dates: start: 20150707, end: 20150710
  4. TEGRETOL [Suspect]
     Active Substance: CARBAMAZEPINE
     Indication: PRODUCT USED FOR UNKNOWN INDICATION
     Dosage: 0.5 DF (HALF TABLET), QD
     Route: 048
     Dates: start: 20150710, end: 20150717
  5. LEVOTHYROX [Concomitant]
     Active Substance: LEVOTHYROXINE
     Indication: PRODUCT USED FOR UNKNOWN INDICATION
     Dosage: 100 UG, Q48H
     Route: 065
  6. TERALITHE [Suspect]
     Active Substance: LITHIUM CARBONATE
     Indication: PRODUCT USED FOR UNKNOWN INDICATION
     Dosage: 3.5 DF (THREE TABLETS AND A HALF), QD
     Route: 048
     Dates: start: 20150622
  7. LEVOTHYROX [Concomitant]
     Active Substance: LEVOTHYROXINE
     Dosage: 112.5 UG, Q48H
     Route: 065
  8. VALIUM [Suspect]
     Active Substance: DIAZEPAM
     Indication: PRODUCT USED FOR UNKNOWN INDICATION
     Dosage: 4 DF (FOUR TABLETS OF VALIUM 10 MG), QD
     Route: 048
     Dates: start: 20150705, end: 20150707
  9. VALIUM [Suspect]
     Active Substance: DIAZEPAM
     Dosage: 5 DF (THREE TABLETS OF VALIUM 2 MG DAILY PLUS TWO TABLETS IN THE EVENING), UNK
     Route: 048
     Dates: start: 20150710, end: 20150713

REACTIONS (1)
  - Extrapyramidal disorder [Recovered/Resolved]

NARRATIVE: CASE EVENT DATE: 201507
